FAERS Safety Report 5264485-3 (Version None)
Quarter: 2007Q1

REPORT INFORMATION
  Report Type: 
  Country: None (occurrence: None)
  Receive Date: 20070309
  Receipt Date: 20070306
  Transmission Date: 20070707
  Serious: Yes (Other)
  Sender: FDA-Public Use
  Company Number: 011388

PATIENT
  Sex: Female

DRUGS (5)
  1. MEDROXYPROGESTERONE [Suspect]
     Dosage: ORAL
     Route: 048
     Dates: start: 19980101, end: 20030401
  2. ESTRADIOL [Suspect]
     Dosage: ORAL
     Route: 048
     Dates: start: 19980101, end: 20030401
  3. CYCRIN [Suspect]
     Dosage: ORAL
     Route: 048
     Dates: start: 19980101, end: 20030401
  4. ESTRACE [Suspect]
     Dosage: ORAL
     Route: 048
     Dates: start: 19980101, end: 20030401
  5. PROVERA [Suspect]
     Dosage: ORAL
     Route: 048
     Dates: start: 19980101, end: 20030401

REACTIONS (1)
  - BREAST CANCER FEMALE [None]
